FAERS Safety Report 10975839 (Version 1)
Quarter: 2015Q2

REPORT INFORMATION
  Report Type: Report from Study
  Country: AU (occurrence: AU)
  Receive Date: 20150401
  Receipt Date: 20150401
  Transmission Date: 20150821
  Serious: Yes (Hospitalization)
  Sender: FDA-Public Use
  Company Number: AU-ABBVIE-15P-008-1361038-00

PATIENT
  Sex: Male

DRUGS (2)
  1. ASPIRIN. [Concomitant]
     Active Substance: ASPIRIN
     Indication: PRODUCT USED FOR UNKNOWN INDICATION
  2. DUODOPA [Suspect]
     Active Substance: CARBIDOPA\LEVODOPA
     Indication: PRODUCT USED FOR UNKNOWN INDICATION
     Route: 050

REACTIONS (7)
  - Mass [Unknown]
  - Constipation [Unknown]
  - Device dislocation [Unknown]
  - Stoma site pain [Unknown]
  - Catheter site erosion [Unknown]
  - Stoma site haemorrhage [Unknown]
  - Device difficult to use [Unknown]
